FAERS Safety Report 23582465 (Version 1)
Quarter: 2024Q1

REPORT INFORMATION
  Report Type: Spontaneous
  Country: IT (occurrence: IT)
  Receive Date: 20240229
  Receipt Date: 20240229
  Transmission Date: 20240410
  Serious: Yes (Other)
  Sender: FDA-Public Use
  Company Number: IT-CELLTRION HEALTHCARE HUNGARY KFT-2023IT018224

PATIENT
  Age: 10 Year
  Sex: Male

DRUGS (14)
  1. RITUXIMAB [Suspect]
     Active Substance: RITUXIMAB
     Indication: Prophylaxis
     Dosage: 200 MG/M2, ON DAY -1
     Route: 065
  2. RITUXIMAB [Suspect]
     Active Substance: RITUXIMAB
     Indication: Prophylaxis against transplant rejection
  3. TACROLIMUS [Suspect]
     Active Substance: TACROLIMUS
     Indication: Prophylaxis against graft versus host disease
     Dosage: 10 AND 12 NG/ML
     Route: 048
  4. TACROLIMUS [Suspect]
     Active Substance: TACROLIMUS
     Indication: Liver transplant rejection
     Dosage: UNK
     Route: 042
  5. FLUDARABINE [Suspect]
     Active Substance: FLUDARABINE PHOSPHATE
     Indication: Prophylaxis against transplant rejection
     Dosage: 40 MG/M2, EVERY 1 DAY, FOR 4 DAYS (FROM DAY -6 TO -3)
     Route: 065
  6. BASILIXIMAB [Suspect]
     Active Substance: BASILIXIMAB
     Indication: Prophylaxis against transplant rejection
     Dosage: 20 MG, AT REPERFUSION AND ON THE FOURTH POSTOPERATIVE DAY
     Route: 042
  7. METHOTREXATE [Suspect]
     Active Substance: METHOTREXATE
     Indication: Prophylaxis against graft versus host disease
     Dosage: UNK
     Route: 065
  8. CYCLOPHOSPHAMIDE [Suspect]
     Active Substance: CYCLOPHOSPHAMIDE
     Indication: Prophylaxis against transplant rejection
     Dosage: 500 MG/M2, EVERY 1 DAY, FOR 4 DAYS (FROM DAY -5 TO -3)
     Route: 065
  9. GRAFALON [Suspect]
     Active Substance: LAPINE T-LYMPHOCYTE IMMUNE GLOBULIN
     Indication: Prophylaxis
     Dosage: 7.5 MG/KG, EVERY 1 DAY, FOR 3 DAYS (FROM DAY -5 TO -3)
     Route: 065
  10. GRAFALON [Suspect]
     Active Substance: LAPINE T-LYMPHOCYTE IMMUNE GLOBULIN
     Indication: Prophylaxis against transplant rejection
  11. PREDNISONE [Suspect]
     Active Substance: PREDNISONE
     Indication: Prophylaxis against transplant rejection
     Dosage: 40 MG, EVERY 1 DAY, FOR 15 DAYS
     Route: 065
  12. PREDNISONE [Suspect]
     Active Substance: PREDNISONE
     Dosage: 5 MG, EVERY 1 DAY, AFTER TAPERED OF 5 MG EVERY WEEK TO REACH MAINTENANCE DOSE OF 5 MG/DAY
     Route: 065
  13. ATGAM [Suspect]
     Active Substance: EQUINE THYMOCYTE IMMUNE GLOBULIN
     Indication: Prophylaxis against transplant rejection
     Dosage: UNK
     Route: 065
  14. METHYLPREDNISOLONE [Suspect]
     Active Substance: METHYLPREDNISOLONE
     Indication: Prophylaxis against transplant rejection
     Dosage: 500 MG, AT REPERFUSION AND IN THE FIRST 3 POSTOPERATIVE DAYS
     Route: 042

REACTIONS (2)
  - Cytomegalovirus infection reactivation [Unknown]
  - Intentional product use issue [Unknown]
